FAERS Safety Report 8578029-1 (Version None)
Quarter: 2012Q3

REPORT INFORMATION
  Report Type: 
  Country: None (occurrence: None)
  Receive Date: 20120726
  Receipt Date: 20120710
  Transmission Date: 20120928
  Serious: Yes (Death)
  Sender: FDA-Public Use
  Company Number: TCI2012A03111

PATIENT
  Age: 89 Year
  Sex: Male

DRUGS (12)
  1. MUCODYNE (CARBOCISTEINE) [Concomitant]
     Indication: PNEUMONIA
     Dosage: 1500 MG (500 MG, 3 IN 1 D)
     Route: 048
     Dates: end: 20120506
  2. MAGLAX (MAGNESIUM OXIDE) [Concomitant]
     Indication: CONSTIPATION
     Dosage: 1500 MG (500 MG 3 IN 1 D)
     Route: 048
     Dates: end: 20120506
  3. LENDEM D ( BROTIZOLAM) [Concomitant]
     Dosage: 0.25 MG (0.25 MG, 1 D)
     Route: 048
     Dates: end: 20120506
  4. FLIVAS OD (NAFTOPIDIL) [Concomitant]
     Indication: BENIGN PROSTATIC HYPERPLASIA
     Dosage: 25 MG (23 MG, 1 IN 1 D)
     Route: 048
     Dates: end: 20120506
  5. WYSTAL (CEFOPERAZONE SODIUM, SULBACTAM SODIUM) [Concomitant]
  6. CASODEX [Concomitant]
     Indication: PROSTATE CANCER
     Dosage: 80 MG (80 MG, 1 IN 1 D)
     Route: 048
     Dates: end: 20120506
  7. SULBACILLIN (AMPICILLIN SODIUM, SULBACTAM SODIUM) [Concomitant]
     Dosage: 6 GM (6 GM, 1 D)
     Dates: start: 20120417, end: 20120423
  8. LOSARTAN POTASSIUM [Concomitant]
     Indication: HYPERTENSION
     Dosage: 25 MG ( 25 MG, 1 IN 1 D)
     Route: 048
     Dates: end: 20120506
  9. SOL-MELCORT (METHYLPREDNISOLONE SODIUM SUCCINATE) [Concomitant]
     Dosage: 40 MG (40 MG, 1 D), 125 MG (125 MG, 1 D), 40 MG (40 MG, ID)
     Dates: start: 20120429, end: 20120505
  10. SOL-MELCORT (METHYLPREDNISOLONE SODIUM SUCCINATE) [Concomitant]
     Dosage: 40 MG (40 MG, 1 D), 125 MG (125 MG, 1 D), 40 MG (40 MG, ID)
     Dates: start: 20120426, end: 20120428
  11. SOL-MELCORT (METHYLPREDNISOLONE SODIUM SUCCINATE) [Concomitant]
     Dosage: 40 MG (40 MG, 1 D), 125 MG (125 MG, 1 D), 40 MG (40 MG, ID)
     Dates: start: 20120417, end: 20120419
  12. ROZEREM [Suspect]
     Indication: INSOMNIA
     Dosage: 8 MG (8 MG, 1 IN 1 D), PER ORAL
     Route: 048
     Dates: start: 20120423, end: 20120506

REACTIONS (3)
  - PNEUMONIA [None]
  - RESPIRATORY FAILURE [None]
  - CARDIO-RESPIRATORY ARREST [None]
